FAERS Safety Report 25254718 (Version 1)
Quarter: 2025Q2

REPORT INFORMATION
  Report Type: Spontaneous
  Country: PT (occurrence: PT)
  Receive Date: 20250430
  Receipt Date: 20250430
  Transmission Date: 20250716
  Serious: Yes (Life-Threatening, Hospitalization)
  Sender: MYLAN
  Company Number: PT-MYLANLABS-2025M1036117

PATIENT
  Age: 74 Year
  Sex: Male

DRUGS (6)
  1. EPINEPHRINE [Suspect]
     Active Substance: EPINEPHRINE
     Indication: Distributive shock
  2. NOREPINEPHRINE BITARTRATE [Suspect]
     Active Substance: NOREPINEPHRINE BITARTRATE
     Indication: Distributive shock
  3. EPHEDRINE [Suspect]
     Active Substance: EPHEDRINE
     Indication: Distributive shock
  4. MORPHINE [Concomitant]
     Active Substance: MORPHINE
     Indication: Spinal anaesthesia
  5. SODIUM NITROPRUSSIDE [Concomitant]
     Active Substance: SODIUM NITROPRUSSIDE
     Indication: Hypertensive crisis
  6. ESMOLOL [Concomitant]
     Active Substance: ESMOLOL HYDROCHLORIDE
     Indication: Hypertensive crisis

REACTIONS (1)
  - Drug ineffective [Unknown]
